FAERS Safety Report 9237915 (Version 1)
Quarter: 2013Q2

REPORT INFORMATION
  Report Type: Spontaneous
  Country: US (occurrence: None)
  Receive Date: 20130415
  Receipt Date: 20130415
  Transmission Date: 20140414
  Serious: Yes (Hospitalization, Other)
  Sender: FDA-Public Use
  Company Number: 7203726

PATIENT
  Age: 32 Year
  Sex: Female

DRUGS (2)
  1. THYROXIN [Suspect]
     Indication: SUPPLEMENTATION THERAPY
     Dates: start: 2011
  2. CARBAMAZEPINE [Suspect]
     Indication: POLYNEUROPATHY
     Dosage: 200 MG (100 MG
     Route: 048

REACTIONS (12)
  - Lung infiltration [None]
  - Tachypnoea [None]
  - Cyanosis [None]
  - Hyponatraemia [None]
  - Polyneuropathy [None]
  - Hypoxia [None]
  - Blood alkaline phosphatase increased [None]
  - Aspartate aminotransferase increased [None]
  - Alanine aminotransferase increased [None]
  - Jaundice [None]
  - Dyspnoea [None]
  - Pyrexia [None]
